FAERS Safety Report 12247789 (Version 2)
Quarter: 2016Q2

REPORT INFORMATION
  Report Type: Spontaneous
  Country: DE (occurrence: DE)
  Receive Date: 20160408
  Receipt Date: 20160516
  Transmission Date: 20160815
  Serious: Yes (Hospitalization, Disabling)
  Sender: FDA-Public Use
  Company Number: DE-ROCHE-1738984

PATIENT
  Age: 58 Year
  Sex: Male
  Weight: 85 kg

DRUGS (3)
  1. ADENURIC [Suspect]
     Active Substance: FEBUXOSTAT
     Indication: HYPERURICAEMIA
     Route: 048
     Dates: start: 2012
  2. ROACTEMRA [Suspect]
     Active Substance: TOCILIZUMAB
     Indication: RHEUMATOID ARTHRITIS
     Route: 042
     Dates: start: 201208
  3. DEKRISTOL [Concomitant]
     Active Substance: CHOLECALCIFEROL
     Indication: OSTEOPENIA
     Route: 048
     Dates: start: 2012

REACTIONS (3)
  - Narcolepsy [Unknown]
  - Fall [Unknown]
  - Leukopenia [Unknown]

NARRATIVE: CASE EVENT DATE: 201511
